FAERS Safety Report 12801559 (Version 2)
Quarter: 2016Q4

REPORT INFORMATION
  Report Type: Spontaneous
  Country: US (occurrence: US)
  Receive Date: 20161003
  Receipt Date: 20161012
  Transmission Date: 20170207
  Serious: No
  Sender: FDA-Public Use
  Company Number: US-PFIZER INC-2016455058

PATIENT
  Age: 63 Year
  Sex: Female

DRUGS (2)
  1. FASLODEX [Concomitant]
     Active Substance: FULVESTRANT
     Dosage: UNK
  2. IBRANCE [Suspect]
     Active Substance: PALBOCICLIB
     Dosage: 125 MG, WEEKLY (ONE PILL THE FIRST WEEK 2 PILLS LAST WEEK AND WILL TAKE 3 PILLS THIS WEEK)
     Dates: start: 20160914

REACTIONS (2)
  - Blood pressure increased [Unknown]
  - Headache [Unknown]
